FAERS Safety Report 4445173-X (Version None)
Quarter: 2004Q3

REPORT INFORMATION
  Report Type: 
  Country: None (occurrence: None)
  Receive Date: 20040819
  Receipt Date: 20040302
  Transmission Date: 20050211
  Serious: Yes (Hospitalization)
  Sender: FDA-Public Use
  Company Number: 2003124379

PATIENT
  Age: 78 Year
  Sex: Female
  Weight: 60 kg

DRUGS (16)
  1. NORVASC [Suspect]
     Indication: ILL-DEFINED DISORDER
  2. ZOLEDRONIC ACID (ZOLEDRONIC ACID) [Suspect]
     Indication: OSTEOPOROSIS POSTMENOPAUSAL
     Dates: start: 20020731
  3. CALCIUM (CALCIUM) [Concomitant]
  4. ERGOCALCIFEROL (ERGOCALCIFEROL) [Concomitant]
  5. HYZAAR [Concomitant]
  6. CONJUGATED ESTROGENS [Concomitant]
  7. SIMVASTATIN [Concomitant]
  8. CELECOXIB (CELECOXIB) [Concomitant]
  9. ASPIRIN [Concomitant]
  10. OMEPRAZOLE [Concomitant]
  11. CALCIUM CARBONATE (CALCIUM CARBONATE) [Concomitant]
  12. ESOMEPRAZOLE (ESOMEPRAZOLE) [Concomitant]
  13. ATENOLOL [Concomitant]
  14. NITROGLYCERIN [Concomitant]
  15. VALSARTAN (VALSARTAN) [Concomitant]
  16. HYDROCHLOROTHIAZIDE [Concomitant]

REACTIONS (1)
  - SYNCOPE [None]
